FAERS Safety Report 13941651 (Version 2)
Quarter: 2017Q4

REPORT INFORMATION
  Report Type: Report from Study
  Country: US (occurrence: US)
  Receive Date: 20170906
  Receipt Date: 20171004
  Transmission Date: 20180320
  Serious: Yes (Other)
  Sender: FDA-Public Use
  Company Number: US-ACTELION-A-US2017-158865

PATIENT
  Age: 79 Year
  Sex: Male
  Weight: 77.98 kg

DRUGS (4)
  1. SILDENAFIL CITRATE. [Concomitant]
     Active Substance: SILDENAFIL CITRATE
  2. ELIQUIS [Concomitant]
     Active Substance: APIXABAN
  3. UPTRAVI [Suspect]
     Active Substance: SELEXIPAG
     Indication: PULMONARY HYPERTENSION
     Dosage: 1400 MCG, BID
     Route: 048
  4. UPTRAVI [Suspect]
     Active Substance: SELEXIPAG
     Dosage: 1600 MCG, BID
     Route: 048

REACTIONS (11)
  - Nausea [Unknown]
  - Malignant melanoma [Unknown]
  - Decreased appetite [Unknown]
  - Constipation [Recovering/Resolving]
  - Therapy non-responder [Unknown]
  - Weight decreased [Unknown]
  - Asthenia [Recovering/Resolving]
  - Back pain [Unknown]
  - Dyspnoea [Recovering/Resolving]
  - Headache [Not Recovered/Not Resolved]
  - Pain in extremity [Unknown]
